FAERS Safety Report 7773038-4 (Version None)
Quarter: 2011Q3

REPORT INFORMATION
  Report Type: 
  Country: None (occurrence: None)
  Receive Date: 20110922
  Receipt Date: 20101115
  Transmission Date: 20111222
  Serious: No
  Sender: FDA-Public Use
  Company Number: US-ASTRAZENECA-2010SE24380

PATIENT
  Age: 38 Year
  Sex: Male
  Weight: 93 kg

DRUGS (5)
  1. LEXAPRO [Concomitant]
  2. SEROQUEL [Suspect]
     Indication: BIPOLAR DISORDER
     Route: 048
     Dates: start: 20040101
  3. SEROQUEL [Suspect]
     Route: 048
  4. OVER THE COUNTER ACID REDUCER [Concomitant]
     Indication: REFLUX GASTRITIS
  5. SEROQUEL [Suspect]
     Route: 048
     Dates: start: 20060101

REACTIONS (7)
  - WEIGHT INCREASED [None]
  - FEELING ABNORMAL [None]
  - INSOMNIA [None]
  - SOMNOLENCE [None]
  - DRUG EFFECT DECREASED [None]
  - WRONG TECHNIQUE IN DRUG USAGE PROCESS [None]
  - THERAPEUTIC RESPONSE UNEXPECTED [None]
